FAERS Safety Report 18606162 (Version 2)
Quarter: 2020Q4

REPORT INFORMATION
  Report Type: Spontaneous
  Country: US (occurrence: US)
  Receive Date: 20201211
  Receipt Date: 20201218
  Transmission Date: 20210114
  Serious: No
  Sender: FDA-Public Use
  Company Number: US-PFIZER INC-2020481782

PATIENT

DRUGS (1)
  1. ADENOSINE PHOSPHATE [Suspect]
     Active Substance: ADENOSINE PHOSPHATE
     Indication: SUPRAVENTRICULAR TACHYCARDIA
     Dosage: UNK
     Route: 042

REACTIONS (2)
  - Drug ineffective [Unknown]
  - Incorrect drug administration rate [Unknown]
